FAERS Safety Report 20029499 (Version 1)
Quarter: 2021Q4

REPORT INFORMATION
  Report Type: Spontaneous
  Country: US (occurrence: US)
  Receive Date: 20211103
  Receipt Date: 20211103
  Transmission Date: 20220303
  Serious: Yes (Other)
  Sender: FDA-Public Use
  Company Number: US-LUPIN PHARMACEUTICALS INC.-2021-21051

PATIENT

DRUGS (6)
  1. MISOPROSTOL [Suspect]
     Active Substance: MISOPROSTOL
     Indication: Labour induction
     Dosage: UNK
     Route: 064
  2. HEPARIN [Suspect]
     Active Substance: HEPARIN SODIUM
     Indication: Anticoagulant therapy
     Dosage: UNK (4000 U OF ANTITHROMBIN III CONCENTRATE)
     Route: 064
  3. HEPARIN [Suspect]
     Active Substance: HEPARIN SODIUM
     Dosage: UNK (60 PERCENT OF LOADING DOSE)
     Route: 064
  4. THROMBATE III [Suspect]
     Active Substance: ANTITHROMBIN III HUMAN
     Indication: Antithrombin III deficiency
     Dosage: UNK
     Route: 064
  5. LOVENOX [Suspect]
     Active Substance: ENOXAPARIN SODIUM
     Indication: Pulmonary embolism
     Dosage: 200 MG, BID
     Route: 064
  6. LOVENOX [Suspect]
     Active Substance: ENOXAPARIN SODIUM
     Dosage: 100 MG
     Route: 064

REACTIONS (2)
  - Premature baby [Unknown]
  - Foetal exposure during pregnancy [Unknown]
